FAERS Safety Report 7403850-2 (Version None)
Quarter: 2011Q2

REPORT INFORMATION
  Report Type: 
  Country: None (occurrence: None)
  Receive Date: 20110408
  Receipt Date: 20110325
  Transmission Date: 20111010
  Serious: Yes (Other)
  Sender: FDA-Public Use
  Company Number: US-CELGENEUS-163-21880-11030759

PATIENT
  Sex: Female
  Weight: 63.56 kg

DRUGS (12)
  1. LIPITOR [Concomitant]
     Dosage: 10 MILLIGRAM
     Route: 048
  2. MV [Concomitant]
     Route: 048
  3. ASPIRIN [Concomitant]
     Dosage: 81 MILLIGRAM
     Route: 048
  4. DEXAMETHASONE [Concomitant]
     Dosage: 40 MILLIGRAM
     Route: 048
     Dates: start: 20100322
  5. HYDROCHLOROTHIAZIDE [Concomitant]
     Dosage: 25 MILLIGRAM
     Route: 048
  6. ALEVE [Concomitant]
     Route: 048
     Dates: start: 20100418
  7. REVLIMID [Suspect]
     Indication: MULTIPLE MYELOMA
     Dosage: 10 MILLIGRAM
     Route: 048
     Dates: start: 20100329
  8. FAMOTIDINE [Concomitant]
     Dosage: 20 MILLIGRAM
     Route: 048
  9. PROMETHAZINE [Concomitant]
     Indication: NAUSEA
     Dosage: 25 MILLIGRAM
     Route: 048
  10. NORVASC [Concomitant]
     Dosage: 10 MILLIGRAM
     Route: 048
  11. FOSINOPRIL SODIUM [Concomitant]
     Dosage: 20 MILLIGRAM
     Route: 048
  12. GLIPIZIDE [Concomitant]
     Dosage: 5 MILLIGRAM
     Route: 048
     Dates: start: 20110222

REACTIONS (1)
  - BLOOD GLUCOSE INCREASED [None]
